FAERS Safety Report 4971445-6 (Version None)
Quarter: 2006Q2

REPORT INFORMATION
  Report Type: 
  Country: None (occurrence: None)
  Receive Date: 20060411
  Receipt Date: 20060411
  Transmission Date: 20061013
  Serious: Yes (Life-Threatening)
  Sender: FDA-Public Use
  Company Number: None

PATIENT
  Age: 18 Year
  Sex: Male
  Weight: 49.8957 kg

DRUGS (1)
  1. ADDERALL 10 [Suspect]

REACTIONS (2)
  - PARANOIA [None]
  - PSYCHOTIC DISORDER [None]
